FAERS Safety Report 4862037-8 (Version None)
Quarter: 2005Q4

REPORT INFORMATION
  Report Type: 
  Country: None (occurrence: None)
  Receive Date: 20051221
  Receipt Date: 20051213
  Transmission Date: 20060501
  Serious: Yes (Hospitalization)
  Sender: FDA-Public Use
  Company Number: ES-JNJFOC-20051202883

PATIENT
  Age: 70 Year
  Sex: Female

DRUGS (7)
  1. REMICADE [Suspect]
     Indication: RHEUMATOID ARTHRITIS
     Route: 042
  2. METHOTREXATE [Interacting]
     Indication: RHEUMATOID ARTHRITIS
     Route: 058
  3. DACORTIN [Interacting]
     Indication: RHEUMATOID ARTHRITIS
     Route: 048
  4. LEDERFOLIN [Concomitant]
     Route: 048
  5. FOSAMAX [Concomitant]
     Route: 048
  6. IDEOS [Concomitant]
     Route: 048
  7. IDEOS [Concomitant]
     Route: 048

REACTIONS (2)
  - BRONCHIECTASIS [None]
  - DRUG INTERACTION [None]
